FAERS Safety Report 7993104-8 (Version None)
Quarter: 2011Q4

REPORT INFORMATION
  Report Type: 
  Country: None (occurrence: None)
  Receive Date: 20111219
  Receipt Date: 20110412
  Transmission Date: 20120403
  Serious: Yes (Hospitalization)
  Sender: FDA-Public Use
  Company Number: US-ASTRAZENECA-2011SE20914

PATIENT
  Sex: Female

DRUGS (2)
  1. LIPITOR [Suspect]
     Dates: start: 20040101
  2. CRESTOR [Suspect]
     Route: 048

REACTIONS (1)
  - MUSCLE SPASMS [None]
